FAERS Safety Report 4925039-9 (Version None)
Quarter: 2006Q1

REPORT INFORMATION
  Report Type: 
  Country: None (occurrence: None)
  Receive Date: 20060127
  Receipt Date: 20051220
  Transmission Date: 20060701
  Serious: Yes (Other)
  Sender: FDA-Public Use
  Company Number: 2005173560

PATIENT
  Age: 70 Year
  Sex: Male

DRUGS (3)
  1. LYRICA [Suspect]
     Indication: NERVE INJURY
     Dosage: 150 MG (75 MG,2 IN 1 D)
     Dates: start: 20050101, end: 20051220
  2. OXYCODONE (OXYCODONE) [Concomitant]
  3. ATENOLOL [Concomitant]

REACTIONS (3)
  - EYE PAIN [None]
  - SOMNOLENCE [None]
  - VISION BLURRED [None]
